FAERS Safety Report 16608590 (Version 11)
Quarter: 2020Q4

REPORT INFORMATION
  Report Type: Report from Study
  Country: IT (occurrence: IT)
  Receive Date: 20190722
  Receipt Date: 20201020
  Transmission Date: 20210113
  Serious: Yes (Other)
  Sender: FDA-Public Use
  Company Number: IT-INCYTE CORPORATION-2019IN000209

PATIENT

DRUGS (8)
  1. JAKAVI [Suspect]
     Active Substance: RUXOLITINIB
     Dosage: 30 OT
     Route: 048
     Dates: start: 20181015, end: 20190131
  2. JAKAVI [Suspect]
     Active Substance: RUXOLITINIB
     Dosage: 20 OT
     Route: 048
     Dates: start: 20190510, end: 20190722
  3. JAKAVI [Suspect]
     Active Substance: RUXOLITINIB
     Dosage: 30 OT
     Route: 048
     Dates: start: 20190403, end: 20190501
  4. ALLOPURINOL. [Concomitant]
     Active Substance: ALLOPURINOL
     Indication: PROPHYLAXIS
     Dosage: 300 OT
     Route: 065
     Dates: start: 20170331
  5. JAKAVI [Suspect]
     Active Substance: RUXOLITINIB
     Indication: POLYCYTHAEMIA VERA
     Dosage: 20 OT
     Route: 048
     Dates: start: 20180724, end: 20181014
  6. JAKAVI [Suspect]
     Active Substance: RUXOLITINIB
     Dosage: 40 OT
     Route: 048
     Dates: start: 20190201, end: 20190402
  7. JAKAVI [Suspect]
     Active Substance: RUXOLITINIB
     Dosage: 10 OT
     Route: 048
     Dates: start: 20190723, end: 20190826
  8. TICLOPIDINE [Concomitant]
     Active Substance: TICLOPIDINE
     Indication: PROPHYLAXIS
     Dosage: 250 OT
     Route: 065
     Dates: start: 20020205

REACTIONS (12)
  - Benign prostatic hyperplasia [Not Recovered/Not Resolved]
  - Drug ineffective [Recovered/Resolved]
  - Splenomegaly [Unknown]
  - Diarrhoea [Recovered/Resolved]
  - Hairy cell leukaemia [Not Recovered/Not Resolved]
  - Lymphocytosis [Unknown]
  - Neutropenia [Recovered/Resolved]
  - Diarrhoea [Recovered/Resolved]
  - Depression [Not Recovered/Not Resolved]
  - Myelofibrosis [Unknown]
  - Fatigue [Recovered/Resolved]
  - Decreased appetite [Recovered/Resolved]

NARRATIVE: CASE EVENT DATE: 20181015
